FAERS Safety Report 17487956 (Version 5)
Quarter: 2020Q3

REPORT INFORMATION
  Report Type: Spontaneous
  Country: US (occurrence: US)
  Receive Date: 20200303
  Receipt Date: 20200702
  Transmission Date: 20201102
  Serious: No
  Sender: FDA-Public Use
  Company Number: US-PFIZER INC-2018478764

PATIENT
  Age: 63 Year
  Sex: Female
  Weight: 68 kg

DRUGS (1)
  1. FLECTOR [Suspect]
     Active Substance: DICLOFENAC EPOLAMINE
     Dosage: 1 PATCH, AS NEEDED (1.3 TWICE A DAY IF NEEDED/1 PATCH TO SKIN TWICE A DAY AS NEEDED 30 DAYS)

REACTIONS (4)
  - Product dispensing error [Unknown]
  - Product prescribing error [Unknown]
  - Intentional product misuse [Unknown]
  - Hypokinesia [Unknown]
